FAERS Safety Report 6960624-4 (Version None)
Quarter: 2010Q3

REPORT INFORMATION
  Report Type: 
  Country: None (occurrence: None)
  Receive Date: 20100817
  Receipt Date: 20090721
  Transmission Date: 20110219
  Serious: No
  Sender: FDA-Public Use
  Company Number: 20097477

PATIENT
  Age: 58 Year
  Sex: Male

DRUGS (3)
  1. LIORESAL [Suspect]
     Indication: MUSCLE SPASTICITY
     Dosage: 748 MCG, DAILY, INTRATHECAL
     Route: 037
  2. BACLOFEN [Concomitant]
  3. MORPHINE [Concomitant]

REACTIONS (1)
  - DRUG INEFFECTIVE [None]
